FAERS Safety Report 25149550 (Version 5)
Quarter: 2025Q2

REPORT INFORMATION
  Report Type: Spontaneous
  Country: GB (occurrence: GB)
  Receive Date: 20250402
  Receipt Date: 20250604
  Transmission Date: 20250717
  Serious: Yes (Other)
  Sender: CSL BEHRING
  Company Number: GB-BEH-2025190995

PATIENT
  Sex: Male

DRUGS (6)
  1. PRIVIGEN [Suspect]
     Active Substance: HUMAN IMMUNOGLOBULIN G
     Indication: Neuromyopathy
     Dosage: 40 G, BIW
     Route: 042
  2. PRIVIGEN [Suspect]
     Active Substance: HUMAN IMMUNOGLOBULIN G
     Indication: Chronic inflammatory demyelinating polyradiculoneuropathy
     Dosage: 40 G, QW
     Route: 042
  3. PRIVIGEN [Suspect]
     Active Substance: HUMAN IMMUNOGLOBULIN G
     Dosage: 40 G, BIW
     Route: 042
  4. PRIVIGEN [Suspect]
     Active Substance: HUMAN IMMUNOGLOBULIN G
     Dosage: 40 G, BIW
     Route: 042
  5. PRIVIGEN [Suspect]
     Active Substance: HUMAN IMMUNOGLOBULIN G
     Route: 042
  6. PRIVIGEN [Suspect]
     Active Substance: HUMAN IMMUNOGLOBULIN G
     Dosage: 40 G, BIW
     Route: 042

REACTIONS (18)
  - Syncope [Unknown]
  - Prostate cancer [Unknown]
  - Blood pressure decreased [Unknown]
  - Dizziness [Recovering/Resolving]
  - Hot flush [Recovering/Resolving]
  - Mobility decreased [Unknown]
  - Malaise [Unknown]
  - Fatigue [Unknown]
  - Mobility decreased [Not Recovered/Not Resolved]
  - Musculoskeletal stiffness [Unknown]
  - Fatigue [Unknown]
  - Hot flush [Recovering/Resolving]
  - Hypoaesthesia [Unknown]
  - Decreased appetite [Recovered/Resolved]
  - Hypotension [Unknown]
  - Malaise [Unknown]
  - General physical health deterioration [Unknown]
  - Constipation [Recovered/Resolved]

NARRATIVE: CASE EVENT DATE: 20250101
